FAERS Safety Report 25269145 (Version 2)
Quarter: 2025Q2

REPORT INFORMATION
  Report Type: Spontaneous
  Country: US (occurrence: US)
  Receive Date: 20250505
  Receipt Date: 20250512
  Transmission Date: 20250717
  Serious: No
  Sender: PFIZER
  Company Number: US-PFIZER INC-202500092367

PATIENT
  Age: 37 Year
  Sex: Female

DRUGS (2)
  1. CIBINQO [Suspect]
     Active Substance: ABROCITINIB
     Indication: Dermatitis atopic
  2. CIBINQO [Suspect]
     Active Substance: ABROCITINIB

REACTIONS (2)
  - COVID-19 [Unknown]
  - Urticaria chronic [Unknown]
